FAERS Safety Report 21843212 (Version 1)
Quarter: 2023Q1

REPORT INFORMATION
  Report Type: Spontaneous
  Country: US (occurrence: US)
  Receive Date: 20230110
  Receipt Date: 20230110
  Transmission Date: 20230417
  Serious: Yes (Hospitalization)
  Sender: FDA-Public Use
  Company Number: US-MYLANLABS-2022M1141517

PATIENT
  Age: 70 Year
  Sex: Female

DRUGS (2)
  1. CLOZAPINE [Interacting]
     Active Substance: CLOZAPINE
     Indication: Schizophrenia
     Dosage: UNK
     Route: 065
  2. HALOPERIDOL [Concomitant]
     Active Substance: HALOPERIDOL
     Indication: Schizophrenia
     Dosage: UNK
     Route: 065

REACTIONS (8)
  - Toxicity to various agents [Unknown]
  - Drug level increased [Unknown]
  - Lethargy [Unknown]
  - Constipation [Unknown]
  - Salivary hypersecretion [Unknown]
  - Eosinophilia [Unknown]
  - Thrombocytopenia [Unknown]
  - Drug-disease interaction [Unknown]
